FAERS Safety Report 13239403 (Version 1)
Quarter: 2017Q1

REPORT INFORMATION
  Report Type: Report from Study
  Country: SE (occurrence: SE)
  Receive Date: 20170216
  Receipt Date: 20170216
  Transmission Date: 20170428
  Serious: Yes (Other)
  Sender: FDA-Public Use
  Company Number: SE-BIOGEN-2016BI00236117

PATIENT
  Age: 26 Year
  Sex: Female

DRUGS (1)
  1. TYSABRI [Suspect]
     Active Substance: NATALIZUMAB
     Indication: MULTIPLE SCLEROSIS
     Dosage: INFUSED OVER 1 HOUR
     Route: 065
     Dates: start: 20150430, end: 20160302

REACTIONS (2)
  - Maternal exposure during pregnancy [Unknown]
  - Caesarean section [Recovered/Resolved]

NARRATIVE: CASE EVENT DATE: 20160306
